FAERS Safety Report 7679440-3 (Version None)
Quarter: 2011Q3

REPORT INFORMATION
  Report Type: 
  Country: None (occurrence: None)
  Receive Date: 20110808
  Receipt Date: 20110722
  Transmission Date: 20111222
  Serious: Yes (Other)
  Sender: FDA-Public Use
  Company Number: 2011VX002152

PATIENT
  Age: 27 Year
  Sex: Male

DRUGS (4)
  1. TIMOLOL MALEATE [Suspect]
     Indication: INTRAOCULAR PRESSURE INCREASED
     Dosage: OPH
     Route: 047
  2. DORZOLAMIDE HYDROCHLORIDE [Suspect]
     Indication: INTRAOCULAR PRESSURE INCREASED
     Dosage: OPH
     Route: 047
  3. PILOCARPINE [Suspect]
     Indication: INTRAOCULAR PRESSURE INCREASED
     Dosage: OPH
     Route: 047
  4. LATANOPROST [Suspect]
     Indication: INTRAOCULAR PRESSURE INCREASED
     Dosage: OPH
     Route: 047

REACTIONS (2)
  - UVEITIS [None]
  - HYPHAEMA [None]
